FAERS Safety Report 8774107 (Version 2)
Quarter: 2012Q4

REPORT INFORMATION
  Report Type: Report from Study
  Country: JP (occurrence: JP)
  Receive Date: 20120907
  Receipt Date: 20121204
  Transmission Date: 20130627
  Serious: Yes (Other)
  Sender: FDA-Public Use
  Company Number: JP-VERTEX PHARMACEUTICAL INC.-2012-020675

PATIENT
  Age: 65 Year
  Sex: Female

DRUGS (11)
  1. VX-950 (TELAPREVIR) [Suspect]
     Indication: CHRONIC HEPATITIS C
     Dosage: 2250 mg, qd
     Route: 048
     Dates: start: 20120515, end: 20120723
  2. VX-950 (TELAPREVIR) [Suspect]
     Dosage: 1500 mg, qd
     Route: 048
     Dates: start: 20120724, end: 20120806
  3. RIBAVIRIN [Suspect]
     Indication: CHRONIC HEPATITIS C
     Dosage: 600 mg, qd
     Route: 048
     Dates: start: 20120515, end: 20120604
  4. RIBAVIRIN [Suspect]
     Dosage: 200 mg,qd
     Route: 048
     Dates: start: 20120605, end: 20120710
  5. RIBAVIRIN [Suspect]
     Dosage: 200 mg/2 days
     Route: 048
     Dates: start: 20120710
  6. RIBAVIRIN [Suspect]
     Dosage: 200 mg, qd
     Route: 048
     Dates: start: 20120807, end: 20120820
  7. RIBAVIRIN [Suspect]
     Dosage: 200 mg/3 days
     Route: 048
     Dates: start: 20120821, end: 20121015
  8. RIBAVIRIN [Suspect]
     Dosage: 400 mg, qd
     Route: 048
     Dates: start: 20121016, end: 20121030
  9. PEGINTERFERON ALFA-2B [Suspect]
     Indication: CHRONIC HEPATITIS C
     Dosage: 1.5 ?g/kg, week
     Route: 058
     Dates: start: 20120515, end: 20121023
  10. LENDORMIN [Concomitant]
     Dosage: UNK
     Route: 048
  11. FERROMIA /00023516/ [Concomitant]
     Dosage: UNK
     Route: 048

REACTIONS (2)
  - Malaise [Not Recovered/Not Resolved]
  - Anaemia [Not Recovered/Not Resolved]
